FAERS Safety Report 8159212 (Version 15)
Quarter: 2013Q4

REPORT INFORMATION
  Report Type: Spontaneous
  Country: FR (occurrence: FR)
  Receive Date: 20110928
  Receipt Date: 20131010
  Transmission Date: 20140711
  Serious: Yes (Hospitalization, Other)
  Sender: FDA-Public Use
  Company Number: FR-AMGEN-FRASP2011048773

PATIENT
  Age: 33 Year
  Sex: Female

DRUGS (19)
  1. ENBREL [Suspect]
     Indication: RHEUMATOID ARTHRITIS
     Dosage: 50 MG, WEEKLY
     Route: 058
     Dates: start: 200409, end: 200509
  2. ENBREL [Suspect]
     Dosage: 50 MG, WEEKLY
     Route: 065
     Dates: start: 200605, end: 201005
  3. ENBREL [Suspect]
     Dosage: UNK
     Route: 065
     Dates: start: 201009, end: 201108
  4. METHOTREXATE SODIUM [Suspect]
     Indication: RHEUMATOID ARTHRITIS
     Dosage: 15 MG, WEEKLY
     Route: 030
     Dates: start: 2003, end: 200509
  5. METHOTREXATE SODIUM [Suspect]
     Dosage: 15 MG, WEEKLY
     Route: 030
     Dates: start: 200605
  6. METHOTREXATE SODIUM [Suspect]
     Dosage: 20 MG, WEEKLY
     Route: 030
     Dates: start: 200705, end: 2008
  7. METHOTREXATE SODIUM [Suspect]
     Dosage: 15 MG, WEEKLY
     Route: 030
     Dates: start: 201005, end: 201101
  8. METHOTREXATE SODIUM [Suspect]
     Dosage: 15 MG, WEEKLY
     Route: 048
     Dates: start: 201111
  9. METHOTREXATE SODIUM [Suspect]
     Dosage: 25 MG, WEEKLY
     Route: 065
     Dates: start: 20120203
  10. IMUREL                             /00001501/ [Concomitant]
     Dosage: 1 DF, 2X/DAY
     Dates: start: 200509
  11. NEORAL [Concomitant]
     Dosage: 125 MG, 2X/DAY
     Dates: start: 200509
  12. CORTANCYL [Concomitant]
     Indication: RHEUMATOID ARTHRITIS
     Dosage: 30 MG, 1X/DAY
     Dates: start: 20120203
  13. CORTANCYL [Concomitant]
     Dosage: 20 MG, 1X/DAY
  14. ADALIMUMAB [Concomitant]
     Dosage: UNK
     Dates: start: 201005, end: 2010
  15. UVEDOSE [Concomitant]
     Dosage: UNK
  16. SPECIAFOLDINE [Concomitant]
     Dosage: UNK
  17. DIFFU K [Concomitant]
     Dosage: UNK
  18. FOSAMAX [Concomitant]
     Dosage: UNK
  19. EUPANTOL [Concomitant]
     Dosage: UNK

REACTIONS (15)
  - Hepatic steatosis [Unknown]
  - VIIth nerve paralysis [Recovering/Resolving]
  - Dyskinesia [Recovering/Resolving]
  - Eye pain [Unknown]
  - Blindness [Recovered/Resolved]
  - Migraine [Not Recovered/Not Resolved]
  - Anosmia [Not Recovered/Not Resolved]
  - In vitro fertilisation [Unknown]
  - Hypersensitivity [Unknown]
  - Asthenia [Not Recovered/Not Resolved]
  - Facial spasm [Not Recovered/Not Resolved]
  - Depression [Unknown]
  - Hepatocellular injury [Unknown]
  - Sarcoidosis [Recovering/Resolving]
  - Transaminases increased [Recovered/Resolved]
